FAERS Safety Report 18484426 (Version 1)
Quarter: 2020Q4

REPORT INFORMATION
  Report Type: Spontaneous
  Country: US (occurrence: US)
  Receive Date: 20201109
  Receipt Date: 20201109
  Transmission Date: 20210114
  Serious: Yes (Death)
  Sender: FDA-Public Use
  Company Number: US-DECIPHERA PHARMACEUTICALS LLC-2020-US-000608

PATIENT
  Sex: Male

DRUGS (1)
  1. QINLOCK [Suspect]
     Active Substance: RIPRETINIB
     Indication: MALIGNANT MELANOMA
     Dosage: 100 MILLIGRAM, QD
     Route: 048
     Dates: start: 20200829, end: 20201027

REACTIONS (1)
  - Death [Fatal]
